FAERS Safety Report 16016884 (Version 1)
Quarter: 2019Q1

REPORT INFORMATION
  Report Type: Spontaneous
  Country: US (occurrence: US)
  Receive Date: 20190228
  Receipt Date: 20190228
  Transmission Date: 20190418
  Serious: No
  Sender: FDA-Public Use
  Company Number: US-PFIZER INC-2019079980

PATIENT
  Age: 56 Year
  Sex: Female
  Weight: 81.65 kg

DRUGS (1)
  1. GABAPENTIN. [Suspect]
     Active Substance: GABAPENTIN
     Indication: NEUROPATHY PERIPHERAL
     Dosage: 1600 MG, DAILY (5 CAPSULES IN MORNING, 5 CAPSULES IN AFTERNOON, AND 6 CAPSULES AT NIGHT)
     Route: 048

REACTIONS (1)
  - Drug ineffective for unapproved indication [Unknown]
